FAERS Safety Report 4705404-5 (Version None)
Quarter: 2005Q3

REPORT INFORMATION
  Report Type: 
  Country: None (occurrence: None)
  Receive Date: 20050701
  Receipt Date: 20020523
  Transmission Date: 20060218
  Serious: Yes (Hospitalization)
  Sender: FDA-Public Use
  Company Number: FR-GLAXOSMITHKLINE-B0269176B

PATIENT
  Sex: Male
  Weight: 3.4 kg

DRUGS (7)
  1. EPIVIR [Suspect]
     Indication: HIV INFECTION
     Dosage: 150MG TWICE PER DAY
  2. RETROVIR [Suspect]
     Indication: ANTIVIRAL PROPHYLAXIS
     Dates: start: 20001016, end: 20001016
  3. ZERIT [Suspect]
     Indication: ANTIVIRAL PROPHYLAXIS
     Dosage: 7MG PER DAY
     Route: 048
     Dates: start: 20001016, end: 20001130
  4. ZERIT [Suspect]
     Indication: HIV INFECTION
  5. SPASFON [Concomitant]
  6. IRON [Concomitant]
  7. VITAMINS [Concomitant]

REACTIONS (12)
  - AGITATION [None]
  - ANAEMIA [None]
  - BLOOD KETONE BODY INCREASED [None]
  - BLOOD LACTIC ACID INCREASED [None]
  - BLOOD PYRUVIC ACID INCREASED [None]
  - DRUG EXPOSURE DURING PREGNANCY [None]
  - FEEDING DISORDER NEONATAL [None]
  - LABORATORY TEST ABNORMAL [None]
  - METABOLIC DISORDER [None]
  - METABOLIC FUNCTION TEST ABNORMAL [None]
  - NEUTROPENIA [None]
  - SPEECH DISORDER [None]
